FAERS Safety Report 6533528-9 (Version None)
Quarter: 2010Q1

REPORT INFORMATION
  Report Type: 
  Country: None (occurrence: None)
  Receive Date: 20100111
  Receipt Date: 20100107
  Transmission Date: 20100710
  Serious: Yes (Life-Threatening)
  Sender: FDA-Public Use
  Company Number: IT-JNJFOC-20100101411

PATIENT
  Sex: Female

DRUGS (5)
  1. PREZISTA [Suspect]
     Indication: HIV INFECTION
     Route: 048
  2. TRUVADA [Concomitant]
     Indication: HIV INFECTION
  3. RALTEGRAVIR [Concomitant]
     Indication: HIV INFECTION
  4. PYRIMETHAMINE TAB [Concomitant]
  5. ATOVAQUONE [Concomitant]

REACTIONS (1)
  - GRAND MAL CONVULSION [None]
